FAERS Safety Report 4740604-X (Version None)
Quarter: 2005Q3

REPORT INFORMATION
  Report Type: 
  Country: None (occurrence: None)
  Receive Date: 20050801
  Receipt Date: 20040609
  Transmission Date: 20060218
  Serious: Yes (Hospitalization)
  Sender: FDA-Public Use
  Company Number: 2004-06-0420

PATIENT
  Age: 46 Year
  Sex: Male

DRUGS (5)
  1. REBETOL [Suspect]
     Indication: HEPATITIS C
     Dosage: 200 MG BID ORAL
     Route: 048
     Dates: start: 20030301, end: 20040207
  2. INFERGEN [Suspect]
     Indication: HEPATITIS C
     Dosage: 15 MCG QD SUBCUTANEOUS
     Route: 058
     Dates: start: 20030301, end: 20040207
  3. NEORAL [Concomitant]
  4. EFFEXOR [Concomitant]
  5. FLOMAX [Concomitant]

REACTIONS (1)
  - PANCREATITIS [None]
